FAERS Safety Report 10199058 (Version 1)
Quarter: 2014Q2

REPORT INFORMATION
  Report Type: Spontaneous
  Country: DE (occurrence: DE)
  Receive Date: 20140527
  Receipt Date: 20140527
  Transmission Date: 20141212
  Serious: Yes (Congenital Anomaly, Other)
  Sender: FDA-Public Use
  Company Number: DE-TEVA-483484GER

PATIENT
  Age: 30 Year
  Sex: Female

DRUGS (3)
  1. CITALOPRAM [Suspect]
     Indication: DEPRESSION
     Dosage: 20 MILLIGRAM DAILY;
     Route: 048
  2. MIRTAZAPIN [Suspect]
     Indication: DEPRESSION
     Dosage: 1 MILLIGRAM DAILY;
     Route: 048
  3. FOLSAEURE [Concomitant]
     Indication: PROPHYLAXIS OF NEURAL TUBE DEFECT
     Route: 048
     Dates: end: 20130320

REACTIONS (1)
  - Abortion spontaneous [Unknown]
